APPROVED DRUG PRODUCT: ZEPBOUND KWIKPEN
Active Ingredient: TIRZEPATIDE
Strength: 60MG/2.4ML (25MG/ML)
Dosage Form/Route: SOLUTION;SUBCUTANEOUS
Application: N217806 | Product #024
Applicant: ELI LILLY AND CO
Approved: Jan 20, 2026 | RLD: Yes | RS: Yes | Type: RX